FAERS Safety Report 4678787-2 (Version None)
Quarter: 2005Q2

REPORT INFORMATION
  Report Type: 
  Country: None (occurrence: None)
  Receive Date: 20050531
  Receipt Date: 20050512
  Transmission Date: 20051028
  Serious: Yes (Other)
  Sender: FDA-Public Use
  Company Number: L05-USA-01724-01

PATIENT
  Age: 71 Year
  Sex: Male

DRUGS (2)
  1. PROPRANOLOL [Suspect]
     Dosage: 20 MG QID
  2. DIPYRIDAMOLE [Suspect]
     Dosage: 25 MG TID

REACTIONS (2)
  - DRUG ERUPTION [None]
  - LICHENOID KERATOSIS [None]
